APPROVED DRUG PRODUCT: ESCITALOPRAM
Active Ingredient: ESCITALOPRAM OXALATE
Strength: EQ 15MG BASE
Dosage Form/Route: CAPSULE;ORAL
Application: N219130 | Product #001
Applicant: ALMATICA PHARMA LLC
Approved: Aug 29, 2025 | RLD: Yes | RS: Yes | Type: RX